FAERS Safety Report 21815735 (Version 1)
Quarter: 2023Q1

REPORT INFORMATION
  Report Type: Spontaneous
  Country: GB (occurrence: GB)
  Receive Date: 20230104
  Receipt Date: 20230104
  Transmission Date: 20230418
  Serious: Yes (Hospitalization, Disabling)
  Sender: FDA-Public Use
  Company Number: None

PATIENT
  Age: 83 Year

DRUGS (3)
  1. RAMIPRIL [Suspect]
     Active Substance: RAMIPRIL
     Indication: Product used for unknown indication
  2. ATORVASTATIN [Concomitant]
     Active Substance: ATORVASTATIN
  3. MEMANTINE [Concomitant]
     Active Substance: MEMANTINE

REACTIONS (2)
  - Hypotension [Recovered/Resolved]
  - Fall [Unknown]
